FAERS Safety Report 14913752 (Version 2)
Quarter: 2018Q2

REPORT INFORMATION
  Report Type: Spontaneous
  Country: US (occurrence: US)
  Receive Date: 20180518
  Receipt Date: 20180526
  Transmission Date: 20180711
  Serious: No
  Sender: FDA-Public Use
  Company Number: US-009507513-1805USA003629

PATIENT
  Age: 44 Year
  Sex: Female

DRUGS (5)
  1. BASILIXIMAB [Concomitant]
     Active Substance: BASILIXIMAB
     Dosage: 20 MG, 2 WEEKS POST TRANSPLANTATION AND CONTINUED MONTHLY
     Route: 042
  2. VALGANCICLOVIR HYDROCHLORIDE. [Concomitant]
     Active Substance: VALGANCICLOVIR HYDROCHLORIDE
     Indication: ANTIVIRAL PROPHYLAXIS
     Dosage: UNK
     Route: 042
  3. REBETOL [Suspect]
     Active Substance: RIBAVIRIN
     Indication: ADENOVIRUS INFECTION
     Dosage: 800 MG (12 MG/KG), DAILY
     Route: 048
  4. TACROLIMUS. [Concomitant]
     Active Substance: TACROLIMUS
     Indication: IMMUNOSUPPRESSION
     Dosage: GOAL TROUGH LEVEL OF 12-15 NG/ML
  5. TACROLIMUS. [Concomitant]
     Active Substance: TACROLIMUS
     Dosage: TROUGH LEVEL GOAL DECREASED TO 8-10 NG/ML

REACTIONS (1)
  - Product use in unapproved indication [Unknown]
